FAERS Safety Report 4804497-4 (Version None)
Quarter: 2005Q4

REPORT INFORMATION
  Report Type: 
  Country: None (occurrence: None)
  Receive Date: 20051017
  Receipt Date: 20051005
  Transmission Date: 20060501
  Serious: Yes (Other)
  Sender: FDA-Public Use
  Company Number: GRP05000156

PATIENT
  Age: 75 Year
  Sex: Female
  Weight: 62 kg

DRUGS (6)
  1. ACTONEL [Suspect]
     Indication: OSTEOPOROSIS
     Dosage: 5 MG, 1/DAY, ORAL
     Route: 048
     Dates: start: 20041001
  2. CALCIUM W/COLECALCIFEROL(COLECALCIFEROL, CALCIUM) [Concomitant]
  3. DIAZEPAM ^RATIOPHARM^(DIAZEPAM) TABLET [Concomitant]
  4. DICLOFENAC (DICLOFENAC) [Concomitant]
  5. TRIARESE (HYDROCHLOROTHIAZIDE, TRAIMTERENE) TABLET [Concomitant]
  6. EFEROX^HEXAL^ (LEVOTHYROXINE SODIUM) TABLET [Concomitant]

REACTIONS (3)
  - GASTROINTESTINAL HAEMORRHAGE [None]
  - IRON DEFICIENCY ANAEMIA [None]
  - PLATELET COUNT INCREASED [None]
